FAERS Safety Report 8802852 (Version 5)
Quarter: 2013Q1

REPORT INFORMATION
  Report Type: Spontaneous
  Country: US (occurrence: US)
  Receive Date: 20120921
  Receipt Date: 20130319
  Transmission Date: 20140127
  Serious: Yes (Hospitalization, Disabling, Other)
  Sender: FDA-Public Use
  Company Number: US-009507513-1209USA004243

PATIENT
  Sex: Female
  Weight: 59.86 kg

DRUGS (4)
  1. FOSAMAX [Suspect]
     Indication: OSTEOPENIA
     Dosage: 70 MG, UNK
     Route: 048
     Dates: start: 1999, end: 200809
  2. FOSAMAX [Suspect]
     Dosage: 35 MG, UNK
     Route: 048
     Dates: start: 20050924, end: 20051205
  3. ALENDRONATE SODIUM [Suspect]
     Indication: OSTEOPENIA
     Dosage: 70 MG, UNK
     Route: 048
     Dates: start: 200809, end: 201106
  4. SYNTHROID [Concomitant]
     Indication: HYPOTHYROIDISM
     Dosage: UNK
     Dates: start: 1960

REACTIONS (39)
  - Open reduction of fracture [Unknown]
  - Fall [Unknown]
  - Contusion [Unknown]
  - Postoperative fever [Unknown]
  - Atelectasis [Unknown]
  - Renal failure chronic [Unknown]
  - Hypertensive heart disease [Unknown]
  - Hyponatraemia [Unknown]
  - Coagulopathy [Unknown]
  - Haemorrhagic anaemia [Not Recovered/Not Resolved]
  - Osteoarthritis [Unknown]
  - Low turnover osteopathy [Not Recovered/Not Resolved]
  - Cholecystectomy [Unknown]
  - Skin cancer [Unknown]
  - Skin cancer [Unknown]
  - Osteoarthritis [Unknown]
  - Hip arthroplasty [Unknown]
  - Femur fracture [Not Recovered/Not Resolved]
  - Constipation [Unknown]
  - Hypersensitivity [Unknown]
  - Varicose vein operation [Unknown]
  - Cataract operation [Unknown]
  - Anxiety [Not Recovered/Not Resolved]
  - Vitamin D deficiency [Unknown]
  - Tooth extraction [Unknown]
  - Oral surgery [Unknown]
  - Lumbar spinal stenosis [Unknown]
  - Osteoarthritis [Unknown]
  - Spinal osteoarthritis [Unknown]
  - Rotator cuff syndrome [Unknown]
  - Stress fracture [Not Recovered/Not Resolved]
  - Hypertension [Not Recovered/Not Resolved]
  - Kyphosis [Unknown]
  - Lumbar spine flattening [Unknown]
  - Radicular pain [Unknown]
  - Back pain [Recovered/Resolved]
  - Gastrooesophageal reflux disease [Unknown]
  - Drug hypersensitivity [Unknown]
  - Drug hypersensitivity [Unknown]
